FAERS Safety Report 22053717 (Version 1)
Quarter: 2023Q1

REPORT INFORMATION
  Report Type: Spontaneous
  Country: SE (occurrence: SE)
  Receive Date: 20230302
  Receipt Date: 20230302
  Transmission Date: 20230417
  Serious: Yes (Other)
  Sender: FDA-Public Use
  Company Number: None

PATIENT
  Sex: Female

DRUGS (2)
  1. YASMIN [Suspect]
     Active Substance: DROSPIRENONE\ETHINYL ESTRADIOL
     Indication: Dysmenorrhoea
     Dosage: 0,03 MG/3 MG
     Route: 048
     Dates: start: 2014, end: 2021
  2. YASMIN [Suspect]
     Active Substance: DROSPIRENONE\ETHINYL ESTRADIOL
     Indication: Premenstrual syndrome

REACTIONS (11)
  - Perfume sensitivity [Not Recovered/Not Resolved]
  - Histamine intolerance [Not Recovered/Not Resolved]
  - Depression [Recovering/Resolving]
  - Candida infection [Recovering/Resolving]
  - Rash [Recovering/Resolving]
  - Asthma [Not Recovered/Not Resolved]
  - Weight increased [Not Recovered/Not Resolved]
  - Pruritus [Recovering/Resolving]
  - Migraine [Not Recovered/Not Resolved]
  - Aggression [Recovering/Resolving]
  - Mood swings [Recovering/Resolving]

NARRATIVE: CASE EVENT DATE: 20140101
